FAERS Safety Report 12197350 (Version 2)
Quarter: 2016Q1

REPORT INFORMATION
  Report Type: Spontaneous
  Country: ES (occurrence: ES)
  Receive Date: 20160322
  Receipt Date: 20160325
  Transmission Date: 20160526
  Serious: Yes (Hospitalization, Other)
  Sender: FDA-Public Use
  Company Number: ES-AMGEN-ESPSP2016032844

PATIENT
  Sex: Male
  Weight: 68 kg

DRUGS (9)
  1. FOLIC ACID. [Concomitant]
     Active Substance: FOLIC ACID
     Dosage: 1 TABLET POST HD
  2. ARANESP [Suspect]
     Active Substance: DARBEPOETIN ALFA
     Indication: REFRACTORY CYTOPENIA WITH UNILINEAGE DYSPLASIA
     Dosage: 50 MUG, QWK
     Route: 042
     Dates: start: 2003
  3. SEVELAMER [Concomitant]
     Active Substance: SEVELAMER
     Dosage: UNK UNK, BID
  4. CINACALCET [Concomitant]
     Active Substance: CINACALCET
     Dosage: 30 UNK, UNK
  5. CITALOPRAM [Concomitant]
     Active Substance: CITALOPRAM HYDROBROMIDE
     Dosage: 10 MG, QD
  6. CALCIFEDIOL [Concomitant]
     Active Substance: CALCIFEDIOL
     Dosage: 5 POSTDIALYSIS DROPS
  7. OMEPRAZOLE. [Concomitant]
     Active Substance: OMEPRAZOLE
     Dosage: 20 UNK, QD
  8. BECOZYME C FORTE [Concomitant]
  9. CALCIUM ACETATE W/MAGNESIUM CARBONATE [Concomitant]
     Dosage: UNK UNK, QD

REACTIONS (13)
  - Refractory cytopenia with unilineage dysplasia [Not Recovered/Not Resolved]
  - Brown tumour [Unknown]
  - Rectal haemorrhage [Unknown]
  - White blood cell count decreased [Unknown]
  - Diverticulum intestinal haemorrhagic [Unknown]
  - Haemodialysis [Unknown]
  - Laboratory test abnormal [Unknown]
  - Chest injury [Unknown]
  - Myelodysplastic syndrome [Unknown]
  - Gastrointestinal disorder [Unknown]
  - Hip fracture [Unknown]
  - Transfusion [Unknown]
  - Haemoglobin abnormal [Unknown]

NARRATIVE: CASE EVENT DATE: 2012
